FAERS Safety Report 24638324 (Version 1)
Quarter: 2024Q4

REPORT INFORMATION
  Report Type: Spontaneous
  Country: US (occurrence: None)
  Receive Date: 20241119
  Receipt Date: 20241119
  Transmission Date: 20250115
  Serious: Yes (Hospitalization)
  Sender: Public
  Company Number: None

PATIENT
  Age: 95 Year
  Sex: Male
  Weight: 66 kg

DRUGS (1)
  1. REMDESIVIR [Suspect]
     Active Substance: REMDESIVIR
     Indication: Upper respiratory tract infection
     Dosage: FREQUENCY : DAILY;?
     Route: 042
     Dates: start: 20240925, end: 20240926

REACTIONS (1)
  - Bradycardia [None]

NARRATIVE: CASE EVENT DATE: 20240926
